FAERS Safety Report 5507682-1 (Version None)
Quarter: 2007Q4

REPORT INFORMATION
  Report Type: 
  Country: None (occurrence: None)
  Receive Date: 20071106
  Receipt Date: 20071031
  Transmission Date: 20080405
  Serious: Yes (Other)
  Sender: FDA-Public Use
  Company Number: B0481986A

PATIENT
  Age: 26 Year
  Sex: Female

DRUGS (2)
  1. ZOVIRAX [Suspect]
     Indication: ORAL HERPES
     Dosage: 200MG FIVE TIMES PER DAY
     Route: 048
     Dates: start: 20070730, end: 20070731
  2. ZOVIRAX [Concomitant]
     Route: 061

REACTIONS (3)
  - ASTHENIA [None]
  - DEPRESSED LEVEL OF CONSCIOUSNESS [None]
  - SOMNOLENCE [None]
